FAERS Safety Report 8119810-2 (Version None)
Quarter: 2012Q1

REPORT INFORMATION
  Report Type: 
  Country: None (occurrence: None)
  Receive Date: 20120206
  Receipt Date: 20120206
  Transmission Date: 20120608
  Serious: Yes (Other)
  Sender: FDA-Public Use
  Company Number: None

PATIENT
  Sex: Male
  Weight: 95.709 kg

DRUGS (2)
  1. PHENYTOIN SODIUM [Suspect]
     Indication: CONVULSION
     Dosage: 2 IN MORNING 3 AT NIGHT MORNING + NIGHT
     Dates: start: 20110101
  2. PHENYTOIN SODIUM [Suspect]
     Indication: CONVULSION
     Dosage: 2 IN MORNING 3 AT NIGHT MORNING + NIGHT
     Dates: start: 20100101

REACTIONS (9)
  - AFFECTIVE DISORDER [None]
  - DEPRESSION [None]
  - AGITATION [None]
  - ANXIETY [None]
  - IRRITABILITY [None]
  - RESTLESSNESS [None]
  - INSOMNIA [None]
  - AGGRESSION [None]
  - ABNORMAL BEHAVIOUR [None]
